FAERS Safety Report 11238338 (Version 1)
Quarter: 2015Q3

REPORT INFORMATION
  Report Type: Spontaneous
  Country: US (occurrence: US)
  Receive Date: 20150704
  Receipt Date: 20150704
  Transmission Date: 20151125
  Serious: Yes (Other)
  Sender: FDA-Public Use
  Company Number: US-TEVA-574048USA

PATIENT
  Age: 51 Year
  Sex: Female

DRUGS (1)
  1. COPAXONE [Suspect]
     Active Substance: GLATIRAMER ACETATE
     Indication: MULTIPLE SCLEROSIS
     Route: 065
     Dates: start: 20040420

REACTIONS (13)
  - Seizure [Unknown]
  - Traumatic tooth displacement [Unknown]
  - Incorrect dose administered by device [Unknown]
  - Injection site mass [Unknown]
  - Injection site pain [Unknown]
  - Upper limb fracture [Unknown]
  - Fall [Unknown]
  - Wrist fracture [Unknown]
  - Rib fracture [Unknown]
  - Injection site haemorrhage [Unknown]
  - Oral infection [Unknown]
  - Lower limb fracture [Unknown]
  - Syringe issue [Unknown]

NARRATIVE: CASE EVENT DATE: 20150624
